FAERS Safety Report 18813895 (Version 1)
Quarter: 2021Q1

REPORT INFORMATION
  Report Type: Spontaneous
  Country: US (occurrence: US)
  Receive Date: 20210201
  Receipt Date: 20210201
  Transmission Date: 20210419
  Serious: No
  Sender: FDA-Public Use
  Company Number: US-AUROBINDO-AUR-APL-2020-016227

PATIENT
  Sex: Female
  Weight: 65.3 kg

DRUGS (6)
  1. DULOXETINE DELAYED?RELEASE CAPSULES USP 30 MG [Suspect]
     Active Substance: DULOXETINE
     Indication: ANXIETY
     Dosage: 30?60 MG, DAILY
     Route: 048
     Dates: start: 2015
  2. DULOXETINE DELAYED?RELEASE CAPSULES USP 60 MG [Suspect]
     Active Substance: DULOXETINE HYDROCHLORIDE
     Indication: MYALGIA
  3. DULOXETINE DELAYED?RELEASE CAPSULES USP 60 MG [Suspect]
     Active Substance: DULOXETINE HYDROCHLORIDE
     Indication: FIBROMYALGIA
  4. DULOXETINE DELAYED?RELEASE CAPSULES USP 60 MG [Suspect]
     Active Substance: DULOXETINE HYDROCHLORIDE
     Indication: ANXIETY
     Dosage: 30?60 MG, DAILY
     Route: 048
     Dates: start: 2015
  5. DULOXETINE DELAYED?RELEASE CAPSULES USP 30 MG [Suspect]
     Active Substance: DULOXETINE
     Indication: MYALGIA
  6. DULOXETINE DELAYED?RELEASE CAPSULES USP 30 MG [Suspect]
     Active Substance: DULOXETINE
     Indication: FIBROMYALGIA

REACTIONS (5)
  - Dry mouth [Recovered/Resolved]
  - Paraesthesia [Unknown]
  - Dizziness [Unknown]
  - Intentional product use issue [Unknown]
  - Treatment noncompliance [Unknown]
